FAERS Safety Report 9941454 (Version 1)
Quarter: 2014Q1

REPORT INFORMATION
  Report Type: Report from Study
  Country: US (occurrence: US)
  Receive Date: 20140303
  Receipt Date: 20140303
  Transmission Date: 20141002
  Serious: No
  Sender: FDA-Public Use
  Company Number: US-ABBVIE-13P-163-1042502-00

PATIENT
  Age: 53 Year
  Sex: Female
  Weight: 89.89 kg

DRUGS (4)
  1. HUMIRA [Suspect]
     Indication: PSORIATIC ARTHROPATHY
     Dates: start: 201005
  2. TRILIPIX [Concomitant]
     Indication: BLOOD CHOLESTEROL INCREASED
  3. DIOVAN [Concomitant]
     Indication: HYPERTENSION
  4. UNKNOWN BIRTH CONTROL [Concomitant]
     Indication: CONTRACEPTION

REACTIONS (2)
  - Hepatic enzyme increased [Not Recovered/Not Resolved]
  - Rash [Recovered/Resolved]
